FAERS Safety Report 6178477-3 (Version None)
Quarter: 2009Q2

REPORT INFORMATION
  Report Type: 
  Country: None (occurrence: None)
  Receive Date: 20090430
  Receipt Date: 20090417
  Transmission Date: 20091009
  Serious: Yes (Other)
  Sender: FDA-Public Use
  Company Number: ENT 2009-0064

PATIENT
  Age: 73 Year
  Sex: Male

DRUGS (12)
  1. COMTAN [Suspect]
     Indication: DRUG EFFECT DECREASED
     Dosage: 200 MG DAILY ORAL
     Route: 048
  2. COMTAN [Suspect]
     Indication: PARKINSON'S DISEASE
     Dosage: 200 MG DAILY ORAL
     Route: 048
  3. GASMOTIN [Concomitant]
  4. MAGLAX [Concomitant]
  5. MADOPAR [Concomitant]
  6. NAUZELIN [Concomitant]
  7. SELEGILINE HCL [Concomitant]
  8. PERMAX [Concomitant]
  9. SYMMETREL [Concomitant]
  10. DEPAS [Concomitant]
  11. LENDORMIN [Concomitant]
  12. EURODIN [Concomitant]

REACTIONS (1)
  - GAMMA-GLUTAMYLTRANSFERASE INCREASED [None]
